FAERS Safety Report 6604613-8 (Version None)
Quarter: 2010Q1

REPORT INFORMATION
  Report Type: 
  Country: None (occurrence: None)
  Receive Date: 20100226
  Receipt Date: 20091228
  Transmission Date: 20100710
  Serious: No
  Sender: FDA-Public Use
  Company Number: A0836729A

PATIENT
  Age: 43 Year
  Sex: Female

DRUGS (4)
  1. LAMICTAL CD [Suspect]
     Indication: BIPOLAR DISORDER
     Dosage: 50MG TWICE PER DAY
     Route: 048
     Dates: start: 20091212
  2. SEROQUEL [Concomitant]
  3. ENABLEX [Concomitant]
  4. ORTHO TRI-CYCLEN [Concomitant]

REACTIONS (1)
  - VISION BLURRED [None]
